FAERS Safety Report 5565917-3 (Version None)
Quarter: 2007Q4

REPORT INFORMATION
  Report Type: 
  Country: None (occurrence: None)
  Receive Date: 20071213
  Receipt Date: 20071128
  Transmission Date: 20080405
  Serious: Yes (Other)
  Sender: FDA-Public Use
  Company Number: STI-2007-02029

PATIENT
  Sex: Male

DRUGS (1)
  1. BETADERM [Suspect]
     Indication: DERMATITIS CONTACT
     Route: 061
     Dates: start: 20040101

REACTIONS (2)
  - SKIN HYPOPIGMENTATION [None]
  - VITILIGO [None]
